FAERS Safety Report 16310456 (Version 6)
Quarter: 2020Q2

REPORT INFORMATION
  Report Type: Spontaneous
  Country: US (occurrence: US)
  Receive Date: 20190514
  Receipt Date: 20200504
  Transmission Date: 20200713
  Serious: Yes (Death, Hospitalization)
  Sender: FDA-Public Use
  Company Number: US-ACTELION-A-NJ2018-182876

PATIENT
  Age: 67 Year
  Sex: Female
  Weight: 39.91 kg

DRUGS (4)
  1. VELETRI [Suspect]
     Active Substance: EPOPROSTENOL
     Dosage: 30 NG/KG, PER MIN
     Route: 042
  2. COUMADIN [Concomitant]
     Active Substance: WARFARIN SODIUM
  3. AMLODIPINE [Concomitant]
     Active Substance: AMLODIPINE BESYLATE
  4. VELETRI [Suspect]
     Active Substance: EPOPROSTENOL
     Indication: PULMONARY HYPERTENSION
     Dosage: 28 NG/KG, PER MIN
     Route: 042

REACTIONS (7)
  - Gastrointestinal haemorrhage [Unknown]
  - Haemoptysis [Unknown]
  - Dyspnoea [Unknown]
  - Thrombocytopenia [Not Recovered/Not Resolved]
  - Death [Fatal]
  - Hospitalisation [Unknown]
  - Pneumonia [Unknown]

NARRATIVE: CASE EVENT DATE: 20181120
